FAERS Safety Report 16067750 (Version 1)
Quarter: 2019Q1

REPORT INFORMATION
  Report Type: Report from Study
  Country: DE (occurrence: DE)
  Receive Date: 20190313
  Receipt Date: 20190313
  Transmission Date: 20190418
  Serious: Yes (Hospitalization, Other)
  Sender: FDA-Public Use
  Company Number: DE-MYLANLABS-2019M1022980

PATIENT
  Age: 78 Year
  Sex: Female
  Weight: 68 kg

DRUGS (8)
  1. ASA [Suspect]
     Active Substance: ASPIRIN
     Indication: AORTIC VALVE REPLACEMENT
     Dosage: 100 MG, UNK
     Route: 048
     Dates: start: 20180726
  2. METFORMIN [Concomitant]
     Active Substance: METFORMIN HYDROCHLORIDE
     Indication: TYPE 2 DIABETES MELLITUS
     Dosage: 1000 MG, UNK
     Route: 048
     Dates: start: 2003
  3. CLOPIDOGREL [Suspect]
     Active Substance: CLOPIDOGREL BISULFATE
     Indication: AORTIC VALVE REPLACEMENT
     Dosage: 75 MG, DAILY
     Route: 048
     Dates: start: 20180726
  4. APIXABAN [Suspect]
     Active Substance: APIXABAN
     Indication: PRODUCT USED FOR UNKNOWN INDICATION
     Dosage: UNK
     Route: 065
  5. PANTOPRAZOL                        /01263201/ [Concomitant]
     Active Substance: PANTOPRAZOLE
     Indication: PROPHYLAXIS
     Dosage: 40 MG, UNK
     Route: 048
     Dates: start: 20180725
  6. FERROSANOL [Concomitant]
     Active Substance: FERROUS GLUCONATE
     Indication: IRON DEFICIENCY ANAEMIA
     Dosage: 100 MG, UNK
     Route: 048
     Dates: start: 20180726
  7. GLIBENCLAMID [Concomitant]
     Active Substance: GLYBURIDE
     Indication: TYPE 2 DIABETES MELLITUS
     Dosage: 1.75 MG, UNK
     Route: 048
     Dates: start: 2003
  8. ENBREL [Concomitant]
     Active Substance: ETANERCEPT
     Indication: RHEUMATOID ARTHRITIS
     Dosage: 1.0 OTHER, UNK
     Route: 058
     Dates: start: 2013

REACTIONS (2)
  - Duodenal vascular ectasia [Unknown]
  - Aneurysm [Recovered/Resolved]

NARRATIVE: CASE EVENT DATE: 20180806
